FAERS Safety Report 6584876-8 (Version None)
Quarter: 2010Q1

REPORT INFORMATION
  Report Type: 
  Country: None (occurrence: None)
  Receive Date: 20100204
  Receipt Date: 20100120
  Transmission Date: 20100710
  Serious: Yes (Other)
  Sender: FDA-Public Use
  Company Number: 003456

PATIENT
  Sex: Female
  Weight: 49.8 kg

DRUGS (4)
  1. CIMZIA [Suspect]
     Indication: CROHN'S DISEASE
     Dosage: (SUBCUTANEOUS)
     Route: 058
     Dates: start: 20091001, end: 20100104
  2. APO-CIPROFLOX [Concomitant]
  3. DIURETICS [Concomitant]
  4. ORTHO TRI-CYCLEN [Concomitant]

REACTIONS (6)
  - DYSPNOEA [None]
  - NEUROPATHY PERIPHERAL [None]
  - OEDEMA PERIPHERAL [None]
  - RASH [None]
  - THROAT TIGHTNESS [None]
  - WEIGHT INCREASED [None]
